FAERS Safety Report 6963854-0 (Version None)
Quarter: 2010Q3

REPORT INFORMATION
  Report Type: 
  Country: None (occurrence: None)
  Receive Date: 20100830
  Receipt Date: 20100816
  Transmission Date: 20110219
  Serious: Yes (Death)
  Sender: FDA-Public Use
  Company Number: B0671525A

PATIENT
  Sex: 0

DRUGS (1)
  1. CEFTAZIDIME SODIUM [Suspect]
     Dosage: 4 GRAMS, PER DAY, INTRAVENOUS
     Route: 042

REACTIONS (1)
  - DEATH [None]
